FAERS Safety Report 11224268 (Version 1)
Quarter: 2015Q2

REPORT INFORMATION
  Report Type: Spontaneous
  Country: IE (occurrence: None)
  Receive Date: 20150625
  Receipt Date: 20150625
  Transmission Date: 20150821
  Serious: Yes (Other)
  Sender: FDA-Public Use
  Company Number: DEP_03081_2015

PATIENT
  Age: 32 Year
  Sex: Female

DRUGS (2)
  1. ESCITALOPRAM [Concomitant]
     Active Substance: ESCITALOPRAM OXALATE
  2. PALEXIA [Suspect]
     Active Substance: TAPENTADOL HYDROCHLORIDE
     Indication: BACK PAIN
     Route: 048
     Dates: start: 20150205, end: 20150410

REACTIONS (2)
  - Delusion [None]
  - Somnolence [None]

NARRATIVE: CASE EVENT DATE: 20150319
